FAERS Safety Report 9223065 (Version 2)
Quarter: 2013Q2

REPORT INFORMATION
  Report Type: Spontaneous
  Country: TW (occurrence: TW)
  Receive Date: 20130410
  Receipt Date: 20130624
  Transmission Date: 20140414
  Serious: Yes (Death, Other)
  Sender: FDA-Public Use
  Company Number: TW-ROCHE-1210604

PATIENT
  Age: 77 Year
  Sex: Female

DRUGS (1)
  1. ACTILYSE [Suspect]
     Indication: BASILAR ARTERY OCCLUSION
     Route: 042

REACTIONS (7)
  - Cerebral infarction [Fatal]
  - Aortic dissection [Fatal]
  - Carotid artery dissection [Unknown]
  - Aortic dissection [Unknown]
  - Peripheral artery dissection [Unknown]
  - Blood pressure decreased [Unknown]
  - Drug ineffective [Unknown]
